FAERS Safety Report 23432223 (Version 1)
Quarter: 2024Q1

REPORT INFORMATION
  Report Type: Spontaneous
  Country: US (occurrence: None)
  Receive Date: 20240122
  Receipt Date: 20240122
  Transmission Date: 20240410
  Serious: Yes (Disabling)
  Sender: FDA-Public Use
  Company Number: None

PATIENT
  Age: 68 Year
  Sex: Female
  Weight: 94.5 kg

DRUGS (17)
  1. LISDEXAMFETAMINE [Suspect]
     Active Substance: LISDEXAMFETAMINE
     Indication: Attention deficit hyperactivity disorder
     Dosage: OTHER QUANTITY : 30 CAPSULE(S);?
     Route: 048
  2. DEVICE [Concomitant]
     Active Substance: DEVICE
  3. LOSARTAN [Concomitant]
     Active Substance: LOSARTAN
  4. PLAQUENIL [Concomitant]
     Active Substance: HYDROXYCHLOROQUINE SULFATE
  5. FUROSEMIDE [Concomitant]
     Active Substance: FUROSEMIDE
  6. ESZOPICLONE [Concomitant]
     Active Substance: ESZOPICLONE
  7. Tolteridine tARTRATE [Concomitant]
  8. TRIAMTERENE [Concomitant]
     Active Substance: TRIAMTERENE
  9. POTASSIUM [Concomitant]
     Active Substance: POTASSIUM
  10. CALCIUM [Concomitant]
     Active Substance: CALCIUM
  11. MAGNESIUM [Concomitant]
     Active Substance: MAGNESIUM
  12. ZINC [Concomitant]
     Active Substance: PYRITHIONE ZINC\ZINC\ZINC CHLORIDE
  13. COLLAGEN [Concomitant]
     Active Substance: COLLAGEN
  14. Women Vitamin [Concomitant]
  15. VITAMIN B COMPLEX [Concomitant]
     Active Substance: CYANOCOBALAMIN\DEXPANTHENOL\NIACINAMIDE\PYRIDOXINE HYDROCHLORIDE\RIBOFLAVIN 5^-PHOSPHATE SODIUM\THIA
  16. VITAMIN E [Concomitant]
     Active Substance: .ALPHA.-TOCOPHEROL
  17. FISH OIL [Concomitant]
     Active Substance: FISH OIL

REACTIONS (3)
  - Bruxism [None]
  - Gingival pain [None]
  - Therapy cessation [None]

NARRATIVE: CASE EVENT DATE: 20231123
